FAERS Safety Report 24187620 (Version 2)
Quarter: 2024Q3

REPORT INFORMATION
  Report Type: Spontaneous
  Country: SE (occurrence: SE)
  Receive Date: 20240808
  Receipt Date: 20240812
  Transmission Date: 20241016
  Serious: Yes (Other)
  Sender: BIOVITRUM
  Company Number: SE-BIOVITRUM-2024-SE-010613

PATIENT
  Sex: Female

DRUGS (2)
  1. ANAKINRA [Suspect]
     Active Substance: ANAKINRA
     Indication: Still^s disease
  2. TOCILIZUMAB [Suspect]
     Active Substance: TOCILIZUMAB
     Indication: Still^s disease

REACTIONS (1)
  - Drug reaction with eosinophilia and systemic symptoms [Recovering/Resolving]
